FAERS Safety Report 4432760-8 (Version None)
Quarter: 2004Q3

REPORT INFORMATION
  Report Type: 
  Country: None (occurrence: None)
  Receive Date: 20040823
  Receipt Date: 20040816
  Transmission Date: 20050211
  Serious: Yes (Death)
  Sender: FDA-Public Use
  Company Number: 2004-119383-NL

PATIENT
  Age: 46 Year
  Sex: Female

DRUGS (1)
  1. PANCURONIUM [Suspect]
     Route: 030

REACTIONS (1)
  - RESPIRATORY FAILURE [None]
